FAERS Safety Report 6201085-2 (Version None)
Quarter: 2009Q2

REPORT INFORMATION
  Report Type: 
  Country: None (occurrence: None)
  Receive Date: 20090526
  Receipt Date: 20090520
  Transmission Date: 20091009
  Serious: Yes (Hospitalization, Other)
  Sender: FDA-Public Use
  Company Number: GB-BRISTOL-MYERS SQUIBB COMPANY-14574743

PATIENT
  Age: 38 Year
  Sex: Female
  Weight: 62 kg

DRUGS (10)
  1. SUSTIVA [Suspect]
     Dosage: TAKEN 800 MG FOR 1 MONTH, THEN 200 MG, THEN 400MG, INTERRUPTED FOR 1 WEEK
     Route: 048
     Dates: start: 20090127, end: 20090324
  2. ATRIPLA [Suspect]
     Indication: HIV INFECTION
     Dosage: 1 DF = EFAVIRENZ 600MG + EMTRICITABINE 200MG + TENOFIR DISOPROXIL 245MG.
     Route: 048
  3. TRUVADA [Concomitant]
     Indication: MENINGITIS TUBERCULOUS
     Dosage: TENNOFIR DISOPROXIL 245MG + EMTRICITABINE 200MG. ALSO GIVEN ON 27JAN09.
     Route: 065
     Dates: start: 20081101
  4. RIFAMPICIN [Concomitant]
     Indication: MENINGITIS TUBERCULOUS
     Route: 048
     Dates: start: 20081101
  5. ISONIAZID [Concomitant]
     Indication: MENINGITIS TUBERCULOUS
     Route: 048
     Dates: start: 20081101
  6. ETHAMBUTOL HCL [Concomitant]
     Indication: MENINGITIS TUBERCULOUS
     Route: 048
     Dates: start: 20081101, end: 20090114
  7. PYRAZINAMIDE [Concomitant]
     Indication: MENINGITIS TUBERCULOUS
     Route: 048
     Dates: start: 20081101, end: 20090114
  8. PYRIDOXINE [Concomitant]
     Indication: MENINGITIS TUBERCULOUS
     Route: 048
     Dates: start: 20081101
  9. CO-TRIMOXAZOLE [Concomitant]
     Indication: ANTIFUNGAL PROPHYLAXIS
     Route: 048
     Dates: start: 20081101
  10. TENOFOVIR DF + EMTRICITABINE [Concomitant]
     Indication: HIV INFECTION
     Dosage: 1 DF = 1 TABLETS
     Dates: start: 20090127

REACTIONS (5)
  - CONVULSION [None]
  - DEPRESSION [None]
  - DIZZINESS [None]
  - DRUG LEVEL INCREASED [None]
  - NIGHTMARE [None]
